FAERS Safety Report 9853927 (Version 2)
Quarter: 2014Q1

REPORT INFORMATION
  Report Type: Report from Study
  Country: US (occurrence: US)
  Receive Date: 20140129
  Receipt Date: 20140129
  Transmission Date: 20141002
  Serious: Yes (Hospitalization, Other)
  Sender: FDA-Public Use
  Company Number: US-ABBVIE-13P-163-1090916-00

PATIENT
  Age: 55 Year
  Sex: Male
  Weight: 99.88 kg

DRUGS (27)
  1. HUMIRA [Suspect]
     Indication: PSORIATIC ARTHROPATHY
     Dates: start: 201105, end: 201208
  2. HUMIRA [Suspect]
     Indication: PSORIASIS
     Dosage: FIRST WEEK
     Route: 058
     Dates: start: 20130516
  3. HUMIRA [Suspect]
     Indication: PSORIASIS
     Dosage: 2ND WEEK
  4. HUMIRA [Suspect]
  5. HUMALOG [Concomitant]
     Indication: DIABETES MELLITUS
  6. LANTUS [Concomitant]
     Indication: DIABETES MELLITUS
     Dosage: AT BEDTIME
  7. VICODIN [Concomitant]
     Indication: PAIN
     Dosage: 5/500MG
  8. VICODIN [Concomitant]
     Indication: BACK PAIN
  9. METHOCARBAMOL [Concomitant]
     Indication: MUSCLE SPASMS
  10. LISINOPRIL [Concomitant]
     Indication: HYPERTENSION
  11. LOVASTATIN [Concomitant]
     Indication: BLOOD CHOLESTEROL INCREASED
  12. GEMFIBROZIL [Concomitant]
     Indication: BLOOD CHOLESTEROL INCREASED
  13. VITAMIN B12 [Concomitant]
     Indication: VITAMIN B COMPLEX DEFICIENCY
  14. WARFARIN [Concomitant]
     Indication: THROMBOSIS PROPHYLAXIS
  15. IRON [Concomitant]
     Indication: IRON DEFICIENCY
  16. CITALOPRAM [Concomitant]
     Indication: DEPRESSION
  17. GLYBURIDE [Concomitant]
     Indication: PRODUCT USED FOR UNKNOWN INDICATION
  18. FOLIC ACID [Concomitant]
     Indication: VITAMIN SUPPLEMENTATION
  19. LASIX [Concomitant]
     Indication: OEDEMA
  20. TRAZODONE [Concomitant]
     Indication: INSOMNIA
     Dosage: AT BEDTIME
  21. TRAZODONE [Concomitant]
     Indication: VITAMIN SUPPLEMENTATION
  22. OMEPRAZOLE [Concomitant]
     Indication: DYSPEPSIA
  23. OMEPRAZOLE [Concomitant]
     Indication: PROPHYLAXIS
  24. STOOL SOFTENER [Concomitant]
     Indication: CONSTIPATION
  25. MAGNESIUM [Concomitant]
     Indication: PRODUCT USED FOR UNKNOWN INDICATION
  26. B-12 [Concomitant]
     Indication: PRODUCT USED FOR UNKNOWN INDICATION
  27. ALLERGY MEDICINE [Concomitant]
     Indication: HYPERSENSITIVITY

REACTIONS (14)
  - Renal neoplasm [Recovered/Resolved]
  - Gout [Unknown]
  - Anaemia [Unknown]
  - Renal function test abnormal [Unknown]
  - Pain in extremity [Recovered/Resolved]
  - Blood urine present [Recovered/Resolved]
  - Back pain [Recovered/Resolved]
  - Psoriatic arthropathy [Recovering/Resolving]
  - Anaemia [Unknown]
  - Fatigue [Unknown]
  - Psoriasis [Unknown]
  - Pain in extremity [Unknown]
  - Blood urine present [Recovered/Resolved]
  - Gout [Unknown]
